FAERS Safety Report 23968811 (Version 2)
Quarter: 2024Q2

REPORT INFORMATION
  Report Type: Spontaneous
  Country: CN (occurrence: CN)
  Receive Date: 20240612
  Receipt Date: 20240620
  Transmission Date: 20240716
  Serious: Yes (Hospitalization, Other)
  Sender: FDA-Public Use
  Company Number: CN-002147023-NVSC2024CN120261

PATIENT
  Age: 58 Year
  Sex: Female

DRUGS (3)
  1. RIBOCICLIB [Suspect]
     Active Substance: RIBOCICLIB
     Indication: Chemotherapy
     Dosage: 600 MG, QD
     Route: 048
     Dates: start: 20240508, end: 20240516
  2. VINORELBINE TARTRATE [Suspect]
     Active Substance: VINORELBINE TARTRATE
     Indication: Chemotherapy
     Dosage: 30 MG, BID (MONDAY, WEDNESDAY, FRIDAY)
     Route: 048
     Dates: start: 20240508, end: 20240516
  3. ANASTROZOLE [Concomitant]
     Active Substance: ANASTROZOLE
     Indication: Chemotherapy
     Dosage: 1 MG, QD
     Route: 048
     Dates: start: 20240508, end: 20240516

REACTIONS (11)
  - Myelosuppression [Unknown]
  - Decreased appetite [Unknown]
  - Asthenia [Unknown]
  - Nausea [Unknown]
  - Vomiting [Unknown]
  - Pyrexia [Unknown]
  - Agranulocytosis [Unknown]
  - Haemoglobin decreased [Unknown]
  - Platelet count decreased [Unknown]
  - Infection [Unknown]
  - Procalcitonin increased [Unknown]

NARRATIVE: CASE EVENT DATE: 20240515
